FAERS Safety Report 6708829-1 (Version None)
Quarter: 2010Q2

REPORT INFORMATION
  Report Type: 
  Country: None (occurrence: None)
  Receive Date: 20100504
  Receipt Date: 20100420
  Transmission Date: 20101027
  Serious: Yes (Other)
  Sender: FDA-Public Use
  Company Number: US-RANBAXY-2010RR-33247

PATIENT
  Age: 51 Year
  Sex: Female

DRUGS (1)
  1. RAMIPRIL [Suspect]
     Dosage: UNK

REACTIONS (2)
  - ACUTE ABDOMEN [None]
  - ANGIOEDEMA [None]
